FAERS Safety Report 13570799 (Version 1)
Quarter: 2017Q2

REPORT INFORMATION
  Report Type: Report from Study
  Country: DE (occurrence: DE)
  Receive Date: 20170523
  Receipt Date: 20170523
  Transmission Date: 20170830
  Serious: Yes (Other)
  Sender: FDA-Public Use
  Company Number: DE-BIOGEN-2016BI00337158

PATIENT
  Age: 35 Year
  Sex: Female
  Weight: 50 kg

DRUGS (3)
  1. AVONEX [Suspect]
     Active Substance: INTERFERON BETA-1A
     Indication: MULTIPLE SCLEROSIS
     Route: 030
     Dates: start: 2010
  2. MAGNESIUM [Concomitant]
     Active Substance: MAGNESIUM
     Indication: PRODUCT USED FOR UNKNOWN INDICATION
     Route: 065
     Dates: start: 2016
  3. PROGESTAN [Concomitant]
     Active Substance: PROGESTERONE
     Indication: PREGNANCY
     Route: 065
     Dates: start: 2016

REACTIONS (3)
  - Maternal exposure during pregnancy [Recovered/Resolved]
  - HELLP syndrome [Unknown]
  - Premature labour [Unknown]

NARRATIVE: CASE EVENT DATE: 2016
